FAERS Safety Report 9304987 (Version 1)
Quarter: 2013Q2

REPORT INFORMATION
  Report Type: Spontaneous
  Country: US (occurrence: None)
  Receive Date: 20130521
  Receipt Date: 20130521
  Transmission Date: 20140414
  Serious: Yes (Other)
  Sender: FDA-Public Use
  Company Number: None

PATIENT
  Age: 36 Year
  Sex: Female
  Weight: 52.62 kg

DRUGS (2)
  1. VANCOMYCIN [Suspect]
     Indication: OSTEOMYELITIS
     Route: 042
     Dates: start: 20130517, end: 20130518
  2. CEFTRIAXONE [Suspect]
     Route: 042
     Dates: start: 20130517, end: 20130606

REACTIONS (3)
  - Pruritus [None]
  - Rash [None]
  - Infusion related reaction [None]
